FAERS Safety Report 9862864 (Version 2)
Quarter: 2014Q1

REPORT INFORMATION
  Report Type: Spontaneous
  Country: US (occurrence: US)
  Receive Date: 20140203
  Receipt Date: 20140206
  Transmission Date: 20141002
  Serious: Yes (Hospitalization, Other)
  Sender: FDA-Public Use
  Company Number: US-BAXTER-2014BAX004032

PATIENT
  Sex: Male

DRUGS (2)
  1. DIANEAL LOW CALCIUM [Suspect]
     Indication: RENAL FAILURE CHRONIC
     Route: 033
     Dates: start: 20131003
  2. DIANEAL LOW CALCIUM [Suspect]
     Route: 033
     Dates: start: 20131003

REACTIONS (3)
  - Cardiac procedure complication [Recovering/Resolving]
  - Toxicity to various agents [Unknown]
  - Coronary artery disease [Recovering/Resolving]
